FAERS Safety Report 11598278 (Version 1)
Quarter: 2015Q4

REPORT INFORMATION
  Report Type: Spontaneous
  Country: US (occurrence: US)
  Receive Date: 20151006
  Receipt Date: 20151006
  Transmission Date: 20160304
  Serious: Yes (Hospitalization, Other)
  Sender: FDA-Public Use
  Company Number: US-PFIZER INC-2015331083

PATIENT
  Age: 30 Year
  Sex: Male
  Weight: 75 kg

DRUGS (9)
  1. PERCOCET [Suspect]
     Active Substance: ACETAMINOPHEN\OXYCODONE HYDROCHLORIDE
     Indication: PAIN
     Dosage: UNK
  2. LOVENOX [Suspect]
     Active Substance: ENOXAPARIN SODIUM
     Dosage: 80MG EVERY 12 HOURS
     Route: 058
     Dates: start: 20150928, end: 20150930
  3. OXYCODONE [Suspect]
     Active Substance: OXYCODONE
     Indication: PAIN
     Dosage: UNK
  4. WARFARIN [Suspect]
     Active Substance: WARFARIN
     Dosage: 5 MG, 1X/DAY
     Route: 048
     Dates: start: 20150927
  5. HEPARIN SODIUM. [Suspect]
     Active Substance: HEPARIN SODIUM
     Dosage: 2500UNITS IN 250 SALINE; 18UNITS PER KG/HOUR
     Route: 042
     Dates: start: 201509, end: 20150928
  6. ARIXTRA [Suspect]
     Active Substance: FONDAPARINUX SODIUM
     Dosage: 75 MG, 1X/DAY
     Route: 058
     Dates: start: 20150930
  7. ZITHROMAX [Suspect]
     Active Substance: AZITHROMYCIN DIHYDRATE
     Dosage: FIRST DAY HE TOOK TWO
  8. ROCEPHIN [Suspect]
     Active Substance: CEFTRIAXONE SODIUM
     Indication: PNEUMONIA
     Dosage: 1GM ONCE A DAY
     Route: 042
     Dates: start: 20150924
  9. ZITHROMAX [Suspect]
     Active Substance: AZITHROMYCIN DIHYDRATE
     Dosage: ONE EVERY DAY FOR FOUR DAYS

REACTIONS (1)
  - Transaminases increased [Not Recovered/Not Resolved]
